FAERS Safety Report 5601737-9 (Version None)
Quarter: 2008Q1

REPORT INFORMATION
  Report Type: 
  Country: None (occurrence: None)
  Receive Date: 20080124
  Receipt Date: 20080109
  Transmission Date: 20080703
  Serious: Yes (Other)
  Sender: FDA-Public Use
  Company Number: MX-GENENTECH-254470

PATIENT
  Sex: Female

DRUGS (5)
  1. HERCEPTIN [Suspect]
     Indication: BREAST CANCER
     Dosage: 440 MG, Q3W
     Route: 042
     Dates: start: 20071212
  2. INSULIN [Concomitant]
     Indication: DRUG USE FOR UNKNOWN INDICATION
     Dosage: UNK, UNK
     Dates: start: 20070715
  3. ASPIRIN [Concomitant]
     Indication: DRUG USE FOR UNKNOWN INDICATION
     Dosage: UNK, UNK
     Dates: start: 20070715
  4. METFORMINA [Concomitant]
     Indication: DRUG USE FOR UNKNOWN INDICATION
     Dates: start: 19900615
  5. METOPROLOL TARTRATE [Concomitant]
     Indication: DRUG USE FOR UNKNOWN INDICATION
     Dates: start: 20070715

REACTIONS (4)
  - ARRHYTHMIA [None]
  - ASTHENIA [None]
  - DISORIENTATION [None]
  - TACHYCARDIA [None]
